FAERS Safety Report 18261751 (Version 1)
Quarter: 2020Q3

REPORT INFORMATION
  Report Type: Spontaneous
  Country: US (occurrence: US)
  Receive Date: 20200912
  Receipt Date: 20200912
  Transmission Date: 20201103
  Serious: Yes (Death)
  Sender: FDA-Public Use
  Company Number: None

PATIENT
  Sex: Male
  Weight: 113.5 kg

DRUGS (4)
  1. VINCRISTINE SULFATE. [Concomitant]
     Active Substance: VINCRISTINE SULFATE
  2. RITUXIMAB (MOAB C2B8 ANTI, CD20, CHIMERIC) [Concomitant]
  3. METHOTREXATE (740) [Suspect]
     Active Substance: METHOTREXATE
  4. ONCASPAR [Concomitant]
     Active Substance: PEGASPARGASE

REACTIONS (3)
  - General physical health deterioration [None]
  - Graft versus host disease [None]
  - Allogenic stem cell transplantation [None]

NARRATIVE: CASE EVENT DATE: 20200904
